FAERS Safety Report 4352348-7 (Version None)
Quarter: 2004Q2

REPORT INFORMATION
  Report Type: 
  Country: None (occurrence: None)
  Receive Date: 20040427
  Receipt Date: 20031204
  Transmission Date: 20050107
  Serious: Yes (Other)
  Sender: FDA-Public Use
  Company Number: WAES 0312USA00577

PATIENT
  Age: 16 Year
  Sex: Female

DRUGS (6)
  1. SINGULAIR [Suspect]
     Indication: ASTHMA
     Dosage: PO
     Route: 048
     Dates: start: 20020101, end: 20020101
  2. SINGULAIR [Suspect]
     Indication: ASTHMA
     Dosage: 10 MG/DAILY/PO
     Route: 048
     Dates: start: 20031121, end: 20031125
  3. ADVAIR DISKUS 100/50 [Concomitant]
  4. ALLEGRA-D [Concomitant]
  5. NASONEX [Concomitant]
  6. ALBUTEROL [Concomitant]

REACTIONS (5)
  - PRURITUS GENERALISED [None]
  - RASH [None]
  - RASH ERYTHEMATOUS [None]
  - URTICARIA [None]
  - URTICARIA PAPULAR [None]
